FAERS Safety Report 5825941-X (Version None)
Quarter: 2008Q3

REPORT INFORMATION
  Report Type: 
  Country: None (occurrence: None)
  Receive Date: 20080729
  Receipt Date: 20080721
  Transmission Date: 20090109
  Serious: Yes (Hospitalization, Other)
  Sender: FDA-Public Use
  Company Number: US-AMGEN-US286105

PATIENT
  Sex: Female
  Weight: 35 kg

DRUGS (21)
  1. EPOGEN [Suspect]
     Indication: DIALYSIS
     Route: 040
     Dates: start: 20080103
  2. ALTACE [Concomitant]
     Route: 048
  3. ASPIRIN [Concomitant]
     Route: 048
  4. COREG [Concomitant]
     Route: 048
  5. DIOVAN [Concomitant]
     Route: 048
  6. DOCUSATE [Concomitant]
     Route: 048
  7. DYNACIRC [Concomitant]
     Route: 048
  8. HYDRALAZINE HCL [Concomitant]
     Route: 048
  9. ISOSORBIDE DINITRATE [Concomitant]
     Route: 048
  10. LEVOTHYROXINE SODIUM [Concomitant]
  11. LIDODERM PATCH (ENDO PHARMACEUTICALS) [Concomitant]
     Route: 061
  12. OMEPRAZOLE [Concomitant]
     Route: 048
  13. MIRALAX [Concomitant]
     Route: 048
  14. PRAVASTATIN [Concomitant]
     Route: 048
  15. MULTI-VITAMINS [Concomitant]
  16. EFFEXOR [Concomitant]
     Route: 048
  17. TYLENOL [Concomitant]
  18. XANAX [Concomitant]
  19. SODIUM PHOSPHATE DIBASIC/SODIUM PHOSPHATE MONOBASIC [Concomitant]
  20. VICODIN [Concomitant]
  21. MILK OF MAGNESIA [Concomitant]

REACTIONS (2)
  - IMMUNOGLOBULINS ABNORMAL [None]
  - THERAPEUTIC RESPONSE DECREASED [None]
